FAERS Safety Report 9416789 (Version 1)
Quarter: 2013Q3

REPORT INFORMATION
  Report Type: Spontaneous
  Country: US (occurrence: US)
  Receive Date: 20130724
  Receipt Date: 20130724
  Transmission Date: 20140515
  Serious: No
  Sender: FDA-Public Use
  Company Number: US-GALDERMA-US12415997

PATIENT
  Age: 34 Year
  Sex: Male

DRUGS (2)
  1. ORACEA (DOXYCYCLINE, USP) CAPSULES 40 MG [Suspect]
     Indication: ROSACEA
     Route: 048
     Dates: start: 20121114, end: 20121218
  2. SULFACETAMIDE SODIUM TOPICAL SUSPENSION [Concomitant]
     Indication: ROSACEA
     Route: 061
     Dates: start: 20121122

REACTIONS (3)
  - Dizziness [Recovered/Resolved]
  - Hearing impaired [Recovered/Resolved]
  - Ear discomfort [Recovered/Resolved]
